FAERS Safety Report 7808070-5 (Version None)
Quarter: 2011Q4

REPORT INFORMATION
  Report Type: 
  Country: None (occurrence: None)
  Receive Date: 20111011
  Receipt Date: 20111007
  Transmission Date: 20120403
  Serious: Yes (Death)
  Sender: FDA-Public Use
  Company Number: TR-ASTRAZENECA-2011SE60399

PATIENT
  Age: 50 Year
  Sex: Female

DRUGS (3)
  1. ARIMIDEX [Suspect]
     Indication: ADJUVANT THERAPY
     Route: 048
  2. NEXIUM [Suspect]
     Route: 048
  3. ESCITALOPRAM [Suspect]
     Route: 065
     Dates: start: 20100401

REACTIONS (1)
  - HEPATIC FAILURE [None]
